FAERS Safety Report 4772255-5 (Version None)
Quarter: 2005Q3

REPORT INFORMATION
  Report Type: 
  Country: None (occurrence: None)
  Receive Date: 20050919
  Receipt Date: 20050425
  Transmission Date: 20060218
  Serious: No
  Sender: FDA-Public Use
  Company Number: US-BRISTOL-MYERS SQUIBB COMPANY-12946661

PATIENT
  Age: 52 Year
  Sex: Male
  Weight: 98 kg

DRUGS (2)
  1. DEFINITY [Suspect]
     Indication: CORONARY ARTERY DISEASE
     Route: 040
     Dates: start: 20050425, end: 20050425
  2. DEFINITY [Suspect]
     Indication: EJECTION FRACTION DECREASED
     Route: 040
     Dates: start: 20050425, end: 20050425

REACTIONS (2)
  - BACK PAIN [None]
  - HEADACHE [None]
